FAERS Safety Report 20491550 (Version 3)
Quarter: 2024Q2

REPORT INFORMATION
  Report Type: Report from Study
  Country: US (occurrence: US)
  Receive Date: 20220218
  Receipt Date: 20240626
  Transmission Date: 20240715
  Serious: Yes (Hospitalization, Other)
  Sender: FDA-Public Use
  Company Number: US-TAKEDA-2020TUS038379

PATIENT
  Age: 49 Year
  Sex: Female

DRUGS (2)
  1. VEDOLIZUMAB [Suspect]
     Active Substance: VEDOLIZUMAB
     Indication: Crohn^s disease
     Dosage: 300 MILLIGRAM
     Route: 042
     Dates: start: 20200820
  2. VEDOLIZUMAB [Suspect]
     Active Substance: VEDOLIZUMAB
     Indication: Colitis ulcerative

REACTIONS (12)
  - Dyspnoea [Unknown]
  - COVID-19 [Unknown]
  - Abdominal pain upper [Unknown]
  - Migraine [Unknown]
  - Fall [Unknown]
  - Malaise [Unknown]
  - Memory impairment [Unknown]
  - Confusional state [Unknown]
  - Product dose omission issue [Unknown]
  - Dizziness [Unknown]
  - Vomiting [Unknown]
  - Back pain [Recovered/Resolved]

NARRATIVE: CASE EVENT DATE: 20200909
